FAERS Safety Report 5736127-1 (Version None)
Quarter: 2008Q2

REPORT INFORMATION
  Report Type: 
  Country: None (occurrence: None)
  Receive Date: 20080513
  Receipt Date: 20080507
  Transmission Date: 20081010
  Serious: Yes (Life-Threatening, Hospitalization)
  Sender: FDA-Public Use
  Company Number: HQWYE038107MAY07

PATIENT
  Age: 82 Year
  Sex: Female

DRUGS (4)
  1. PANTOPRAZOLE SODIUM [Suspect]
     Route: 048
  2. ATENOLOL [Suspect]
     Route: 048
     Dates: start: 20070215, end: 20070221
  3. TROMALYT [Concomitant]
     Route: 048
  4. RISPERDAL [Suspect]
     Dosage: 1 MG, FREQUENCY NOT SPECIFIED
     Route: 048

REACTIONS (2)
  - BLOOD OSMOLARITY INCREASED [None]
  - DIABETES MELLITUS [None]
